FAERS Safety Report 8799549 (Version 2)
Quarter: 2014Q2

REPORT INFORMATION
  Report Type: Spontaneous
  Country: US (occurrence: US)
  Receive Date: 20120919
  Receipt Date: 20131024
  Transmission Date: 20141212
  Serious: No
  Sender: FDA-Public Use
  Company Number: US-PFIZER INC-2012228442

PATIENT
  Sex: Female
  Weight: 59 kg

DRUGS (5)
  1. PREMPRO [Suspect]
     Indication: HOT FLUSH
     Dosage: 0.625/2.5 MG, DAILY
     Route: 048
     Dates: start: 2009, end: 20120825
  2. PREMPRO [Suspect]
     Indication: LIBIDO DISORDER
  3. PROPRANOLOL [Concomitant]
     Indication: HYPERTENSION
     Dosage: 60 MG, 1X/DAY
     Dates: start: 2007
  4. PROPRANOLOL [Concomitant]
     Indication: FLUSHING
  5. ASPIRIN [Concomitant]
     Indication: HYPERTENSION
     Dosage: 81 MG, 1X/DAY

REACTIONS (1)
  - Acne [Recovered/Resolved]
